FAERS Safety Report 7875677-9 (Version None)
Quarter: 2011Q4

REPORT INFORMATION
  Report Type: 
  Country: None (occurrence: None)
  Receive Date: 20111031
  Receipt Date: 20111020
  Transmission Date: 20120403
  Serious: Yes (Other)
  Sender: FDA-Public Use
  Company Number: NL-ASTRAZENECA-2011SE63465

PATIENT
  Age: 26952 Day
  Sex: Male
  Weight: 67 kg

DRUGS (5)
  1. ENTOCORT CAPSULE [Suspect]
     Indication: CROHN'S DISEASE
     Route: 048
     Dates: start: 20060315
  2. QUINAPRIL [Concomitant]
     Route: 048
     Dates: start: 19870701
  3. ACETYLSALICYLZUUR [Concomitant]
     Route: 048
     Dates: start: 19870701
  4. SIMVASTATIN [Concomitant]
     Route: 048
     Dates: start: 19870701
  5. PREDNISOLONE [Concomitant]
     Dosage: VARIABLE 60 TO 7 MG PER DAY
     Route: 048
     Dates: start: 20090724

REACTIONS (2)
  - DRUG PRESCRIBING ERROR [None]
  - ADDISON'S DISEASE [None]
